FAERS Safety Report 7604828-6 (Version None)
Quarter: 2011Q3

REPORT INFORMATION
  Report Type: 
  Country: None (occurrence: None)
  Receive Date: 20110712
  Receipt Date: 20110706
  Transmission Date: 20111222
  Serious: Yes (Death, Hospitalization)
  Sender: FDA-Public Use
  Company Number: US-CELGENEUS-163-21880-11070495

PATIENT
  Sex: Female
  Weight: 77.634 kg

DRUGS (8)
  1. DEXAMETHASONE [Concomitant]
     Dosage: 20 MILLIGRAM
     Route: 048
  2. WARFARIN SODIUM [Concomitant]
     Dosage: 5MG ALTERNATING WITH 7.5MG
     Route: 048
  3. ALLOPURINOL [Concomitant]
     Dosage: 300 MILLIGRAM
     Route: 048
  4. ACYCLOVIR [Concomitant]
     Dosage: 400 MILLIGRAM
     Route: 048
  5. REVLIMID [Suspect]
     Dosage: 25 MILLIGRAM
     Route: 048
     Dates: start: 20110304, end: 20110611
  6. BORTEZOMIB [Concomitant]
     Dosage: 2.6 MILLIGRAM
     Route: 051
     Dates: end: 20110601
  7. NPH INSULIN [Concomitant]
     Dosage: 20 UNITS - 10 UNITS
     Route: 058
  8. GABAPENTIN [Concomitant]
     Dosage: 600 MILLIGRAM
     Route: 048

REACTIONS (1)
  - HAEMOTHORAX [None]
